FAERS Safety Report 8334040-7 (Version None)
Quarter: 2012Q2

REPORT INFORMATION
  Report Type: 
  Country: None (occurrence: None)
  Receive Date: 20120503
  Receipt Date: 20110207
  Transmission Date: 20120825
  Serious: No
  Sender: FDA-Public Use
  Company Number: US-TEVA-2011000607

PATIENT
  Sex: Female
  Weight: 122.58 kg

DRUGS (7)
  1. NUVIGIL [Suspect]
     Indication: SLEEP APNOEA SYNDROME
     Dosage: 250 MILLIGRAM;
     Route: 048
  2. MOBIC [Concomitant]
  3. GABAPENTIN [Concomitant]
  4. LUVOX [Concomitant]
  5. LISINOPRIL [Concomitant]
  6. NUVIGIL [Suspect]
     Dosage: 500 MILLIGRAM;
     Route: 048
  7. SYNTHROID [Concomitant]

REACTIONS (2)
  - DRUG INEFFECTIVE [None]
  - DRUG PRESCRIBING ERROR [None]
